FAERS Safety Report 15538958 (Version 1)
Quarter: 2018Q4

REPORT INFORMATION
  Report Type: Spontaneous
  Country: US (occurrence: US)
  Receive Date: 20181022
  Receipt Date: 20181022
  Transmission Date: 20190205
  Serious: No
  Sender: FDA-Public Use
  Company Number: US-SA-2018SA291038

PATIENT

DRUGS (1)
  1. ASPERCREME WITH LIDOCAINE FOOT PAIN CREME [Suspect]
     Active Substance: LIDOCAINE HYDROCHLORIDE

REACTIONS (2)
  - Skin reaction [Unknown]
  - Condition aggravated [Unknown]
